FAERS Safety Report 24706073 (Version 1)
Quarter: 2024Q4

REPORT INFORMATION
  Report Type: Spontaneous
  Country: IT (occurrence: IT)
  Receive Date: 20241206
  Receipt Date: 20241206
  Transmission Date: 20250115
  Serious: Yes (Other)
  Sender: OXFORD PHARMACEUTICALS, LLC
  Company Number: IT-Oxford Pharmaceuticals, LLC-2166600

PATIENT
  Age: 28 Year
  Sex: Female

DRUGS (3)
  1. BACLOFEN [Suspect]
     Active Substance: BACLOFEN
     Indication: Product used for unknown indication
  2. LACOSAMIDE [Suspect]
     Active Substance: LACOSAMIDE
  3. BRIVARACETAM [Suspect]
     Active Substance: BRIVARACETAM

REACTIONS (1)
  - Central sleep apnoea syndrome [Recovered/Resolved]
